FAERS Safety Report 7948297-5 (Version None)
Quarter: 2011Q4

REPORT INFORMATION
  Report Type: 
  Country: None (occurrence: None)
  Receive Date: 20111130
  Receipt Date: 20111122
  Transmission Date: 20120403
  Serious: Yes (Death, Other)
  Sender: FDA-Public Use
  Company Number: IL-CELGENEUS-082-50794-11102527

PATIENT
  Age: 78 Year
  Sex: Female

DRUGS (1)
  1. VIDAZA [Suspect]
     Route: 050
     Dates: start: 20110101, end: 20110801

REACTIONS (2)
  - ACUTE MYELOID LEUKAEMIA [None]
  - MYELODYSPLASTIC SYNDROME TRANSFORMATION [None]
